FAERS Safety Report 8516868-3 (Version None)
Quarter: 2012Q3

REPORT INFORMATION
  Report Type: 
  Country: None (occurrence: None)
  Receive Date: 20120706
  Receipt Date: 20120626
  Transmission Date: 20120928
  Serious: Yes (Other)
  Sender: FDA-Public Use
  Company Number: 2012MA008108

PATIENT
  Age: 50 Year
  Sex: Male

DRUGS (9)
  1. VENLAFAXINE HCL [Suspect]
     Indication: PRODUCT USED FOR UNKNOWN INDICATION
     Dosage: 75 MG; BID
  2. TRAMADOL HYDROCHLORIDE [Concomitant]
  3. BISMUTH [Concomitant]
  4. DIAZEPAM [Concomitant]
  5. ARIPIPRAZOLE [Concomitant]
  6. PROPRANOLOL [Concomitant]
  7. ACETAMINOPHEN [Concomitant]
  8. LITHIUM CARBONATE [Suspect]
     Indication: PRODUCT USED FOR UNKNOWN INDICATION
     Dosage: 1000 MG; QD
  9. OMACOR [Concomitant]

REACTIONS (1)
  - BLOOD GLUCOSE FLUCTUATION [None]
